FAERS Safety Report 5106399-5 (Version None)
Quarter: 2006Q3

REPORT INFORMATION
  Report Type: 
  Country: None (occurrence: None)
  Receive Date: 20060918
  Receipt Date: 20060913
  Transmission Date: 20061208
  Serious: Yes (Death)
  Sender: FDA-Public Use
  Company Number: JP-AVENTIS-200612839JP

PATIENT
  Sex: Female

DRUGS (1)
  1. LASIX [Suspect]

REACTIONS (5)
  - DRUG TOXICITY [None]
  - GOUT [None]
  - HYPERURICAEMIA [None]
  - OVERDOSE [None]
  - RENAL DISORDER [None]
